FAERS Safety Report 8840826 (Version 1)
Quarter: 2012Q4

REPORT INFORMATION
  Report Type: Report from Study
  Country: US (occurrence: US)
  Receive Date: 20121015
  Receipt Date: 20121015
  Transmission Date: 20130627
  Serious: Yes (Death, Other)
  Sender: FDA-Public Use
  Company Number: US-TEVA-364558USA

PATIENT
  Age: 71 Year
  Sex: Male

DRUGS (6)
  1. TREANDA [Suspect]
     Dosage: cyclic
     Route: 042
     Dates: start: 20120419, end: 20120712
  2. OFATUMUMAB [Suspect]
     Dosage: cyclic
     Route: 042
     Dates: start: 20120419, end: 20120712
  3. PERCOCET [Concomitant]
  4. WARFARIN SODIUM [Concomitant]
  5. ONDANSETRON HYDROCHLORIDE [Concomitant]
  6. PROMETHAZINE HYDROCHLORIDE [Concomitant]

REACTIONS (5)
  - Renal failure acute [Fatal]
  - Embolism [Fatal]
  - Pyrexia [Fatal]
  - Neutrophil count decreased [Recovered/Resolved]
  - Lung infection [Fatal]
